FAERS Safety Report 8411635 (Version 2)
Quarter: 2012Q4

REPORT INFORMATION
  Report Type: 
  Country: US (occurrence: US)
  Receive Date: 20120217
  Receipt Date: 20121012
  Transmission Date: 20130627
  Serious: Yes (Other)
  Sender: FDA-Public Use
  Company Number: US-US-EMD SERONO, INC.-7112481

PATIENT
  Age: 60 None
  Sex: Female
  Weight: 70 kg

DRUGS (10)
  1. REBIF [Suspect]
     Indication: PRODUCT USED FOR UNKNOWN INDICATION
     Dates: start: 2005
  2. REBIF [Suspect]
     Route: 058
     Dates: start: 2006
  3. RESTASIS EMU [Concomitant]
  4. ALENDRONATE [Concomitant]
  5. GABAPENTIN [Concomitant]
  6. BUPROPION HYDROCHLORIDE [Concomitant]
  7. BACLOFEN [Concomitant]
  8. AMANTADINE [Concomitant]
  9. FISH OIL [Concomitant]
  10. CALCIUM [Concomitant]

REACTIONS (2)
  - Grand mal convulsion [Unknown]
  - Platelet count decreased [Recovering/Resolving]
